FAERS Safety Report 5856041-0 (Version None)
Quarter: 2008Q3

REPORT INFORMATION
  Report Type: 
  Country: None (occurrence: None)
  Receive Date: 20080821
  Receipt Date: 20080805
  Transmission Date: 20090109
  Serious: Yes (Hospitalization)
  Sender: FDA-Public Use
  Company Number: ALK_00663_2008

PATIENT
  Sex: Female

DRUGS (3)
  1. VIVITROL [Suspect]
     Indication: ALCOHOLISM
     Dosage: 380 MG INTRAMUSCULAR
     Route: 030
     Dates: start: 20080101
  2. XANAX [Concomitant]
  3. FIORICET [Concomitant]

REACTIONS (2)
  - ALCOHOLISM [None]
  - TREATMENT NONCOMPLIANCE [None]
